FAERS Safety Report 9665083 (Version 2)
Quarter: 2013Q4

REPORT INFORMATION
  Report Type: Spontaneous
  Country: US (occurrence: US)
  Receive Date: 20131101
  Receipt Date: 20131107
  Transmission Date: 20140711
  Serious: Yes (Disabling)
  Sender: FDA-Public Use
  Company Number: US-MERCK-1310USA014163

PATIENT
  Age: 50 Year
  Sex: Male

DRUGS (3)
  1. JANUVIA [Suspect]
     Indication: BLOOD GLUCOSE ABNORMAL
     Dosage: 1 PILL PER DAY
     Route: 048
     Dates: start: 201308, end: 2013
  2. JANUVIA [Suspect]
     Dosage: UNK
     Dates: start: 2013
  3. LOSARTAN POTASSIUM TABLETS [Concomitant]
     Indication: HYPERTENSION

REACTIONS (8)
  - Sexual dysfunction [Recovered/Resolved]
  - Erectile dysfunction [Recovered/Resolved]
  - Local swelling [Recovered/Resolved]
  - Pain [Recovered/Resolved]
  - Local swelling [Unknown]
  - Pain [Unknown]
  - Erectile dysfunction [Unknown]
  - Sexual dysfunction [Unknown]
